FAERS Safety Report 19383541 (Version 1)
Quarter: 2021Q2

REPORT INFORMATION
  Report Type: Report from Study
  Country: US (occurrence: US)
  Receive Date: 20210607
  Receipt Date: 20210607
  Transmission Date: 20210717
  Serious: Yes (Hospitalization)
  Sender: FDA-Public Use
  Company Number: US-KINIKSA PHARMACEUTICALS LTD.-2021KPU000219

PATIENT
  Age: 61 Year
  Sex: Female

DRUGS (1)
  1. ARCALYST [Suspect]
     Active Substance: RILONACEPT
     Indication: PRODUCT USED FOR UNKNOWN INDICATION
     Route: 058
     Dates: start: 202103

REACTIONS (2)
  - Hospitalisation [None]
  - Pericarditis [None]

NARRATIVE: CASE EVENT DATE: 20210518
